FAERS Safety Report 12541241 (Version 2)
Quarter: 2016Q3

REPORT INFORMATION
  Report Type: Spontaneous
  Country: JP (occurrence: JP)
  Receive Date: 20160708
  Receipt Date: 20160722
  Transmission Date: 20161109
  Serious: Yes (Other)
  Sender: FDA-Public Use
  Company Number: JP-009507513-1607JPN000846

PATIENT
  Age: 70 Year
  Sex: Male

DRUGS (3)
  1. REBETOL [Suspect]
     Active Substance: RIBAVIRIN
     Dosage: 800 MG, DIVIDED DOSE FREQUENCY UNKNOWN
     Route: 048
     Dates: start: 201606
  2. TRANSFER FACTOR [Concomitant]
     Dosage: DAILY DOSE UNKNOWN
     Route: 065
  3. SOVALDI [Suspect]
     Active Substance: SOFOSBUVIR
     Dosage: 400 MG,DIVIDED DOSE FREQUENCY UNKNOWN
     Route: 048
     Dates: start: 201606

REACTIONS (1)
  - Hyperbilirubinaemia [Recovered/Resolved]

NARRATIVE: CASE EVENT DATE: 201606
